FAERS Safety Report 8925686 (Version 7)
Quarter: 2013Q3

REPORT INFORMATION
  Report Type: Report from Study
  Country: US (occurrence: US)
  Receive Date: 20121126
  Receipt Date: 20130712
  Transmission Date: 20140515
  Serious: Yes (Hospitalization, Other)
  Sender: FDA-Public Use
  Company Number: US-ROCHE-1152818

PATIENT
  Sex: Male

DRUGS (5)
  1. PEGASYS [Suspect]
     Indication: CHRONIC HEPATITIS C
     Route: 065
     Dates: start: 20121026
  2. RIBASPHERE [Suspect]
     Indication: CHRONIC HEPATITIS C
     Dosage: DIVIDED DOSES
     Route: 065
     Dates: start: 20121026
  3. RIBASPHERE [Suspect]
     Dosage: DIVIDED DOSES
     Route: 065
     Dates: start: 20121012
  4. FAMOTIDINE [Concomitant]
  5. MELOXICAM [Concomitant]

REACTIONS (23)
  - Transfusion [Unknown]
  - Blood glucose fluctuation [Unknown]
  - Gallbladder disorder [Unknown]
  - Cholelithiasis [Unknown]
  - Feeling abnormal [Unknown]
  - Influenza like illness [Unknown]
  - Speech disorder [Unknown]
  - Epistaxis [Unknown]
  - Fatigue [Unknown]
  - Fatigue [Unknown]
  - Malaise [Unknown]
  - Irritability [Unknown]
  - Influenza [Unknown]
  - Headache [Unknown]
  - Rhinorrhoea [Unknown]
  - Body temperature increased [Unknown]
  - Blood pressure fluctuation [Unknown]
  - Diarrhoea [Unknown]
  - Memory impairment [Unknown]
  - Speech disorder developmental [Unknown]
  - Condition aggravated [Unknown]
  - Decreased appetite [Unknown]
  - Emotional disorder [Recovered/Resolved]
